FAERS Safety Report 9216570 (Version 1)
Quarter: 2013Q2

REPORT INFORMATION
  Report Type: Spontaneous
  Country: US (occurrence: US)
  Receive Date: 20130408
  Receipt Date: 20130408
  Transmission Date: 20140414
  Serious: No
  Sender: FDA-Public Use
  Company Number: US-PFIZER INC-2013109958

PATIENT
  Age: 66 Year
  Sex: Female
  Weight: 54.42 kg

DRUGS (7)
  1. ZOLOFT [Suspect]
     Indication: ANXIETY
     Dosage: 100 MG, 2X/DAY
     Dates: start: 200701
  2. XANAX [Concomitant]
     Indication: NERVOUS SYSTEM DISORDER
     Dosage: 25 MG, 3X/DAY
  3. XANAX [Concomitant]
     Indication: ANXIETY
  4. OXYCONTIN [Concomitant]
     Indication: PAIN
     Dosage: 80 MG, UNK
  5. SYNTHROID [Concomitant]
     Indication: HYPOTHYROIDISM
     Dosage: 0.112 MG, DAILY
  6. LYRICA [Concomitant]
     Indication: PAIN
     Dosage: 100 MG, 2X/DAY
  7. OXYCODONE [Concomitant]
     Indication: SPINAL PAIN
     Dosage: 60 MG, EVERY 4 HOURS AS NEEDED
     Route: 048

REACTIONS (1)
  - Vomiting [Unknown]
